FAERS Safety Report 4628285-7 (Version None)
Quarter: 2005Q2

REPORT INFORMATION
  Report Type: 
  Country: None (occurrence: None)
  Receive Date: 20050404
  Receipt Date: 20050324
  Transmission Date: 20051028
  Serious: Yes (Other)
  Sender: FDA-Public Use
  Company Number: 2005049962

PATIENT
  Age: 24 Year
  Sex: Female

DRUGS (8)
  1. MEDROL [Suspect]
     Indication: NEPHROTIC SYNDROME
     Dosage: 4 MG , ORAL
     Route: 048
  2. ALDACTONE [Suspect]
     Indication: OEDEMA
     Dosage: 25-50 MG, ORAL
     Route: 048
     Dates: start: 20050224
  3. FUROSEMIDE [Suspect]
     Indication: OEDEMA
     Dosage: 40 MG, ORAL
     Route: 048
     Dates: start: 20050201
  4. FUROSEMIDE [Suspect]
     Indication: OEDEMA
     Dosage: 40 MG, ORAL
     Route: 048
     Dates: start: 20050201
  5. ALACEPRIL (ALACEPRIL) [Suspect]
     Indication: HYPERTENSION
     Dosage: 25 MG, ORAL
     Route: 048
  6. MIZORBINE (MIZORBINE) [Suspect]
     Indication: NEPHROTIC SYNDROME
     Dosage: 25 MG, ORAL
     Route: 048
  7. ALBUMIN (HUMAN) [Suspect]
     Indication: NEPHROTIC SYNDROME
     Dosage: INTRAVENOUS
     Route: 042
  8. FAMOTIDINE [Suspect]
     Indication: ILL-DEFINED DISORDER
     Dosage: ORAL
     Route: 048
     Dates: start: 20050201

REACTIONS (3)
  - BETA 2 MICROGLOBULIN URINE INCREASED [None]
  - OEDEMA [None]
  - RENAL IMPAIRMENT [None]
